FAERS Safety Report 6005685-4 (Version None)
Quarter: 2008Q4

REPORT INFORMATION
  Report Type: 
  Country: None (occurrence: None)
  Receive Date: 20081215
  Receipt Date: 20081201
  Transmission Date: 20090506
  Serious: Yes (Other)
  Sender: FDA-Public Use
  Company Number: 100#03#2008-06160

PATIENT
  Age: 44 Year
  Sex: Female

DRUGS (13)
  1. CITALOPRAM HYDROBROMIDE [Suspect]
     Indication: DRUG USE FOR UNKNOWN INDICATION
     Dosage: 20 MG
  2. METHYLENE BLUE (METHYLTHIONINIUM CHLORIDE) [Suspect]
     Indication: SCAN PARATHYROID
     Dosage: 560 MG IN 500 ML OF SALINE OVER 2 HOURS
  3. ACETYLSALICYLIC ACID SRT [Concomitant]
  4. ATENOLOL [Concomitant]
  5. SIMVASTATIN [Concomitant]
  6. ISOSORBIDE MONONITRATE [Concomitant]
  7. BENDROFLUMETHIAZIDE (BENDROFLUMETHIAZIDE) [Concomitant]
  8. FELODIPINE [Concomitant]
  9. PROPOFOL [Concomitant]
  10. REMIFENTANIL (REMIFENTANIL) [Concomitant]
  11. ROCURONIUM BROMIDE [Concomitant]
  12. DEXAMETHASONE TAB [Concomitant]
  13. MORPHINE [Concomitant]

REACTIONS (4)
  - DRUG INTERACTION [None]
  - SEROTONIN SYNDROME [None]
  - THERAPEUTIC AGENT TOXICITY [None]
  - WHITE BLOOD CELL COUNT INCREASED [None]
